FAERS Safety Report 8747757 (Version 2)
Quarter: 2012Q4

REPORT INFORMATION
  Report Type: 
  Country: IT (occurrence: IT)
  Receive Date: 20120827
  Receipt Date: 20120911
  Transmission Date: 20130627
  Serious: Yes (Hospitalization)
  Sender: FDA-Public Use
  Company Number: IT-PFIZER INC-2012197142

PATIENT
  Age: 87 Year
  Sex: Male

DRUGS (11)
  1. QUARK [Suspect]
     Indication: HYPERTENSION
     Dosage: 5 mg, daily
     Route: 048
     Dates: start: 20110801, end: 20120805
  2. TERAZOSIN [Concomitant]
     Dosage: UNK
  3. REPAGLINIDE [Concomitant]
     Dosage: UNK
  4. METOPROLOL [Concomitant]
     Dosage: UNK
  5. LASIX [Concomitant]
     Indication: HYPERTENSION
     Dosage: UNK
     Dates: start: 20090101
  6. GLUCOPHAGE [Concomitant]
     Indication: TYPE 2 DIABETES MELLITUS
     Dosage: UNK
     Dates: start: 20120101, end: 20120805
  7. ROSUVASTATIN [Concomitant]
     Dosage: UNK
  8. NEXIUM [Concomitant]
     Dosage: UNK
  9. CARDIRENE [Concomitant]
     Dosage: UNK
  10. TALOFEN [Concomitant]
     Dosage: UNK
  11. HALDOL [Concomitant]
     Dosage: UNK

REACTIONS (2)
  - Renal failure chronic [Recovering/Resolving]
  - Blood sodium increased [Unknown]
